FAERS Safety Report 23805320 (Version 5)
Quarter: 2025Q1

REPORT INFORMATION
  Report Type: Report from Study
  Country: US (occurrence: US)
  Receive Date: 20240502
  Receipt Date: 20250109
  Transmission Date: 20250409
  Serious: No
  Sender: TAKEDA
  Company Number: US-TAKEDA-2024TUS040696

PATIENT
  Age: 44 Year
  Sex: Male
  Weight: 117 kg

DRUGS (31)
  1. HUMAN IMMUNOGLOBULIN G [Suspect]
     Active Substance: HUMAN IMMUNOGLOBULIN G
     Indication: Neuropathy peripheral
  2. HUMAN IMMUNOGLOBULIN G [Suspect]
     Active Substance: HUMAN IMMUNOGLOBULIN G
     Dosage: 20 GRAM, 2/WEEK
     Dates: start: 20240420
  3. HUMAN IMMUNOGLOBULIN G [Suspect]
     Active Substance: HUMAN IMMUNOGLOBULIN G
  4. CUVITRU [Suspect]
     Active Substance: HUMAN IMMUNOGLOBULIN G
     Indication: Neuropathy peripheral
  5. CUVITRU [Suspect]
     Active Substance: HUMAN IMMUNOGLOBULIN G
     Indication: Multifocal motor neuropathy
     Dosage: 20 GRAM, 2/WEEK
     Dates: start: 20241017
  6. EPINEPHRINE [Concomitant]
     Active Substance: EPINEPHRINE
  7. ACETAMINOPHEN [Concomitant]
     Active Substance: ACETAMINOPHEN
  8. NARATRIPTAN HYDROCHLORIDE [Concomitant]
     Active Substance: NARATRIPTAN HYDROCHLORIDE
  9. OMEPRAZOLE [Concomitant]
     Active Substance: OMEPRAZOLE
  10. MODAFINIL [Concomitant]
     Active Substance: MODAFINIL
  11. VITAMIN B [Concomitant]
     Active Substance: VITAMIN B
  12. ACETAMINOPHEN\HYDROCODONE [Concomitant]
     Active Substance: ACETAMINOPHEN\HYDROCODONE
  13. PRED FORTE [Concomitant]
     Active Substance: PREDNISOLONE ACETATE
  14. PROPRANOLOL HYDROCHLORIDE [Concomitant]
     Active Substance: PROPRANOLOL HYDROCHLORIDE
  15. VITAMIN D [Concomitant]
     Active Substance: VITAMIN D NOS
  16. LIDOCAINE [Concomitant]
     Active Substance: LIDOCAINE
  17. LISINOPRIL [Concomitant]
     Active Substance: LISINOPRIL
  18. VITAMIN D3 [Concomitant]
     Active Substance: CHOLECALCIFEROL
  19. DIPHENHYDRAMINE HYDROCHLORIDE [Concomitant]
     Active Substance: DIPHENHYDRAMINE HYDROCHLORIDE
  20. CETIRIZINE [Concomitant]
     Active Substance: CETIRIZINE HYDROCHLORIDE
  21. HIZENTRA [Concomitant]
     Active Substance: HUMAN IMMUNOGLOBULIN G
  22. NARATRIPTAN [Concomitant]
     Active Substance: NARATRIPTAN HYDROCHLORIDE
  23. PROPRANOLOL [Concomitant]
     Active Substance: PROPRANOLOL HYDROCHLORIDE
  24. VITAMIN D2 [Concomitant]
     Active Substance: ERGOCALCIFEROL
  25. VITAMIN B12 [Concomitant]
     Active Substance: CYANOCOBALAMIN
  26. LOPERAMIDE [Concomitant]
     Active Substance: LOPERAMIDE
  27. AZITHROMYCIN [Concomitant]
     Active Substance: AZITHROMYCIN
  28. LORATADINE [Concomitant]
     Active Substance: LORATADINE
  29. DIPHENHYDRAMINE [Concomitant]
     Active Substance: DIPHENHYDRAMINE
  30. CETIRIZINE HCL [Concomitant]
     Active Substance: CETIRIZINE HYDROCHLORIDE
  31. LORATADINE [Concomitant]
     Active Substance: LORATADINE

REACTIONS (9)
  - Infusion related reaction [Unknown]
  - Incorrect drug administration rate [Unknown]
  - Rash macular [Unknown]
  - Infusion site infection [Unknown]
  - Localised infection [Unknown]
  - Swelling [Unknown]
  - Nausea [Unknown]
  - Dizziness [Unknown]
  - Headache [Unknown]

NARRATIVE: CASE EVENT DATE: 20241022
